FAERS Safety Report 5093021-X (Version None)
Quarter: 2006Q3

REPORT INFORMATION
  Report Type: 
  Country: None (occurrence: None)
  Receive Date: 20060830
  Receipt Date: 20060707
  Transmission Date: 20061208
  Serious: Yes (Other)
  Sender: FDA-Public Use
  Company Number: FR-BRISTOL-MYERS SQUIBB COMPANY-13436456

PATIENT
  Age: 56 Year
  Sex: Female
  Weight: 50 kg

DRUGS (10)
  1. PRAVASTATIN [Suspect]
     Indication: HYPERCHOLESTEROLAEMIA
     Dosage: 10MG PER DAY FROM 04-DEC-2003, INCREASED TO 20MG PER DAY ON 06-SEP-2005
     Route: 048
     Dates: start: 20031204, end: 20060707
  2. EFFEXOR XR [Suspect]
     Route: 048
     Dates: start: 20060309
  3. XENAZINE [Suspect]
     Indication: DYSKINESIA
     Route: 048
     Dates: start: 20060110
  4. PREVISCAN [Concomitant]
     Indication: PHLEBITIS
     Dates: start: 19970101
  5. DAFLON [Concomitant]
     Indication: PHLEBITIS
     Dates: start: 19970101
  6. ACTONEL [Concomitant]
     Indication: DYSKINESIA
     Dates: start: 20050413
  7. STILNOX [Concomitant]
  8. ABUFENE [Concomitant]
     Dates: start: 20050415
  9. AGREAL [Concomitant]
     Dates: start: 20030101, end: 20050413
  10. LAMALINE [Concomitant]

REACTIONS (4)
  - BILIARY CYST [None]
  - BLOOD AMYLASE INCREASED [None]
  - GASTROINTESTINAL DISORDER [None]
  - LIPASE INCREASED [None]
